FAERS Safety Report 21508093 (Version 1)
Quarter: 2022Q4

REPORT INFORMATION
  Report Type: Spontaneous
  Country: US (occurrence: None)
  Receive Date: 20221025
  Receipt Date: 20221025
  Transmission Date: 20230113
  Serious: Yes (Death)
  Sender: FDA-Public Use
  Company Number: None

PATIENT
  Age: 87 Year
  Sex: Female
  Weight: 43.2 kg

DRUGS (5)
  1. CLINDAMYCIN PALMITATE HYDROCHLORIDE [Suspect]
     Active Substance: CLINDAMYCIN PALMITATE HYDROCHLORIDE
     Dosage: FREQUENCY : DAILY;?
     Route: 048
     Dates: start: 20210928, end: 20210930
  2. PANTOPRAZOLE SODIUM [Concomitant]
     Active Substance: PANTOPRAZOLE SODIUM
     Dates: start: 20210927, end: 20211010
  3. Gavescon liquid OTC [Concomitant]
     Dates: start: 20210930, end: 20211010
  4. Albuteral liquid nebulized [Concomitant]
     Dates: end: 20211010
  5. GINGER [Concomitant]
     Active Substance: GINGER
     Dates: end: 20211010

REACTIONS (7)
  - Asthma [None]
  - Cough [None]
  - Cough [None]
  - Gastrooesophageal reflux disease [None]
  - Abdominal pain upper [None]
  - Product prescribing issue [None]
  - Product use complaint [None]

NARRATIVE: CASE EVENT DATE: 20211001
